FAERS Safety Report 8769425 (Version 2)
Quarter: 2012Q4

REPORT INFORMATION
  Report Type: 
  Country: US (occurrence: US)
  Receive Date: 20120905
  Receipt Date: 20120905
  Transmission Date: 20130627
  Serious: No
  Sender: FDA-Public Use
  Company Number: US-MYLANLABS-2012S1000454

PATIENT
  Age: 71 Year
  Sex: Male

DRUGS (5)
  1. SPIRONOLACTONE [Suspect]
     Indication: CARDIAC DISORDER
     Route: 048
     Dates: start: 20110803, end: 20110920
  2. SPIRONOLACTONE [Suspect]
     Indication: FLUID RETENTION
     Route: 048
     Dates: start: 20110803, end: 20110920
  3. FUROSEMIDE [Concomitant]
     Dates: end: 20120124
  4. LOSARTAN [Concomitant]
  5. POTASSIUM CHLORIDE [Concomitant]
     Dates: end: 20120124

REACTIONS (2)
  - Myalgia [Not Recovered/Not Resolved]
  - Pruritus [Not Recovered/Not Resolved]
